FAERS Safety Report 6001376-4 (Version None)
Quarter: 2008Q4

REPORT INFORMATION
  Report Type: 
  Country: None (occurrence: None)
  Receive Date: 20081215
  Receipt Date: 20081203
  Transmission Date: 20090506
  Serious: Yes (Hospitalization)
  Sender: FDA-Public Use
  Company Number: US-ELI_LILLY_AND_COMPANY-US200812000999

PATIENT
  Sex: Female

DRUGS (5)
  1. CYMBALTA [Suspect]
     Indication: MAJOR DEPRESSION
     Dosage: 30 MG, UNK
     Dates: start: 20081001, end: 20081001
  2. CYMBALTA [Suspect]
     Dosage: 60 MG, UNK
     Dates: start: 20081001, end: 20081001
  3. CYMBALTA [Suspect]
     Dosage: 90 MG, UNK
     Dates: start: 20081101
  4. ATIVAN [Concomitant]
  5. VITAMIN D [Concomitant]

REACTIONS (4)
  - DIZZINESS [None]
  - DRUG INEFFECTIVE [None]
  - EMOTIONAL DISTRESS [None]
  - FALL [None]
